FAERS Safety Report 11597038 (Version 1)
Quarter: 2015Q4

REPORT INFORMATION
  Report Type: Spontaneous
  Country: US (occurrence: None)
  Receive Date: 20151005
  Receipt Date: 20151005
  Transmission Date: 20160304
  Serious: Yes (Other)
  Sender: FDA-Public Use
  Company Number: None

PATIENT
  Age: 38 Year
  Sex: Female
  Weight: 65.77 kg

DRUGS (6)
  1. MAKENA [Suspect]
     Active Substance: HYDROXYPROGESTERONE CAPROATE
     Indication: PREGNANCY
     Route: 030
     Dates: start: 20150722, end: 20151002
  2. TYLENOL [Concomitant]
     Active Substance: ACETAMINOPHEN
  3. PRENATAL VITAMIN [Concomitant]
     Active Substance: VITAMINS
  4. MAKENA [Concomitant]
     Active Substance: HYDROXYPROGESTERONE CAPROATE
  5. MAKENA [Suspect]
     Active Substance: HYDROXYPROGESTERONE CAPROATE
     Indication: PREMATURE DELIVERY
     Route: 030
     Dates: start: 20150722, end: 20151002
  6. MAKENA [Suspect]
     Active Substance: HYDROXYPROGESTERONE CAPROATE
     Indication: PROPHYLAXIS
     Route: 030
     Dates: start: 20150722, end: 20151002

REACTIONS (8)
  - Gait disturbance [None]
  - Injection site erythema [None]
  - Injection site warmth [None]
  - Injection site mass [None]
  - Injection site thrombosis [None]
  - Injection site swelling [None]
  - Injection site pain [None]
  - Injection site cellulitis [None]

NARRATIVE: CASE EVENT DATE: 20151002
